FAERS Safety Report 24681669 (Version 1)
Quarter: 2024Q4

REPORT INFORMATION
  Report Type: Spontaneous
  Country: US (occurrence: US)
  Receive Date: 20241130
  Receipt Date: 20241130
  Transmission Date: 20250114
  Serious: No
  Sender: BRISTOL-MYERS SQUIBB COMPANY
  Company Number: US-BRISTOL-MYERS SQUIBB COMPANY-2024-185821

PATIENT
  Age: 52 Year
  Sex: Female
  Weight: 127.01 kg

DRUGS (4)
  1. ELIQUIS [Suspect]
     Active Substance: APIXABAN
     Indication: Thrombosis
     Dosage: DOSE : 2.5 MG TABLET;     FREQ : TWICE A DAY
     Route: 048
     Dates: start: 20241108, end: 20241117
  2. LIBRAX [Concomitant]
     Active Substance: CHLORDIAZEPOXIDE HYDROCHLORIDE\CLIDINIUM BROMIDE
     Indication: Irritable bowel syndrome
  3. ACIPHEX [Concomitant]
     Active Substance: RABEPRAZOLE SODIUM
     Indication: Product used for unknown indication
  4. TRULICITY [Concomitant]
     Active Substance: DULAGLUTIDE
     Indication: Product used for unknown indication
     Dosage: WEEKLY.

REACTIONS (4)
  - Urticaria [Unknown]
  - Pruritus [Unknown]
  - Weight decreased [Unknown]
  - Neck pain [Unknown]

NARRATIVE: CASE EVENT DATE: 20241101
